FAERS Safety Report 17193528 (Version 22)
Quarter: 2023Q4

REPORT INFORMATION
  Report Type: Spontaneous
  Country: CA (occurrence: CA)
  Receive Date: 20191223
  Receipt Date: 20231114
  Transmission Date: 20240109
  Serious: Yes (Other)
  Sender: FDA-Public Use
  Company Number: CA-BAUSCH-BL-2019-065992

PATIENT
  Age: 76 Year
  Sex: Female

DRUGS (142)
  1. BUDESONIDE [Suspect]
     Active Substance: BUDESONIDE
     Indication: Product used for unknown indication
     Route: 048
  2. BUDESONIDE [Suspect]
     Active Substance: BUDESONIDE
     Route: 048
  3. BUDESONIDE [Suspect]
     Active Substance: BUDESONIDE
     Route: 050
  4. BUDESONIDE [Suspect]
     Active Substance: BUDESONIDE
     Route: 050
  5. BUDESONIDE [Suspect]
     Active Substance: BUDESONIDE
     Indication: Product used for unknown indication
     Route: 065
  6. DILTIAZEM [Suspect]
     Active Substance: DILTIAZEM
     Indication: Product used for unknown indication
     Route: 065
  7. DILTIAZEM [Suspect]
     Active Substance: DILTIAZEM
     Route: 048
  8. DILTIAZEM [Suspect]
     Active Substance: DILTIAZEM
     Dosage: DILTIAZEM HYDROCHLORIDE
     Route: 065
  9. DILTIAZEM [Suspect]
     Active Substance: DILTIAZEM
     Dosage: DILTIAZEM HYDROCHLORIDE
     Route: 048
  10. METFORMIN [Suspect]
     Active Substance: METFORMIN HYDROCHLORIDE
     Indication: Product used for unknown indication
     Route: 065
  11. METFORMIN [Suspect]
     Active Substance: METFORMIN HYDROCHLORIDE
     Indication: Gastrooesophageal reflux disease
     Route: 065
  12. METFORMIN [Suspect]
     Active Substance: METFORMIN HYDROCHLORIDE
     Route: 048
  13. METFORMIN [Suspect]
     Active Substance: METFORMIN HYDROCHLORIDE
     Dosage: METFORMIN HYDROCHLORIDE
     Route: 048
  14. METFORMIN [Suspect]
     Active Substance: METFORMIN HYDROCHLORIDE
     Dosage: METFORMIN HYDROCHLORIDE
     Route: 065
  15. METFORMIN [Suspect]
     Active Substance: METFORMIN HYDROCHLORIDE
     Dosage: METFORMIN HYDROCHLORIDE
     Route: 065
  16. METFORMIN [Suspect]
     Active Substance: METFORMIN HYDROCHLORIDE
     Dosage: METFORMIN HYDROCHLORIDE
     Route: 048
  17. ALBUTEROL [Suspect]
     Active Substance: ALBUTEROL
     Indication: Asthma
     Route: 065
  18. ALBUTEROL [Suspect]
     Active Substance: ALBUTEROL
     Dosage: SALBUTAMOL SULFATE
     Route: 065
  19. ALBUTEROL [Suspect]
     Active Substance: ALBUTEROL
     Dosage: SALBUTAMOL SULFATE - METERED-DOSE AEROSOL
     Route: 065
  20. ALBUTEROL [Suspect]
     Active Substance: ALBUTEROL
     Dosage: SALBUTAMOL SULFATE
     Route: 055
  21. ALBUTEROL [Suspect]
     Active Substance: ALBUTEROL
     Dosage: SALBUTAMOL HFA - METERED-DOSE (AEROSOL)
     Route: 065
  22. VENLAFAXINE [Suspect]
     Active Substance: VENLAFAXINE HYDROCHLORIDE
     Indication: Product used for unknown indication
     Route: 065
  23. FERROUS SULFATE [Suspect]
     Active Substance: FERROUS SULFATE
     Indication: Product used for unknown indication
     Route: 065
  24. INVOKANA [Suspect]
     Active Substance: CANAGLIFLOZIN
     Indication: Type 2 diabetes mellitus
     Route: 065
  25. INVOKANA [Suspect]
     Active Substance: CANAGLIFLOZIN
     Route: 048
  26. INVOKANA [Suspect]
     Active Substance: CANAGLIFLOZIN
     Route: 048
  27. LANSOPRAZOLE [Suspect]
     Active Substance: LANSOPRAZOLE
     Indication: Product used for unknown indication
     Dosage: DELAYED RELEASE CAPSULE
     Route: 048
  28. LANSOPRAZOLE [Suspect]
     Active Substance: LANSOPRAZOLE
     Dosage: GASTRO-RESISTANT CAPSULE, HARD
     Route: 065
  29. LANSOPRAZOLE [Suspect]
     Active Substance: LANSOPRAZOLE
     Route: 065
  30. LANSOPRAZOLE [Suspect]
     Active Substance: LANSOPRAZOLE
     Dosage: DELAYED RELEASE CAPSULE
     Route: 048
  31. LANSOPRAZOLE [Suspect]
     Active Substance: LANSOPRAZOLE
     Route: 065
  32. LANSOPRAZOLE [Suspect]
     Active Substance: LANSOPRAZOLE
     Route: 065
  33. LANSOPRAZOLE [Suspect]
     Active Substance: LANSOPRAZOLE
     Route: 048
  34. LANSOPRAZOLE [Suspect]
     Active Substance: LANSOPRAZOLE
     Route: 048
  35. LANSOPRAZOLE [Suspect]
     Active Substance: LANSOPRAZOLE
     Route: 065
  36. LANSOPRAZOLE [Suspect]
     Active Substance: LANSOPRAZOLE
     Route: 065
  37. MOMETASONE FUROATE [Suspect]
     Active Substance: MOMETASONE FUROATE
     Indication: Product used for unknown indication
     Route: 065
  38. MOMETASONE FUROATE [Suspect]
     Active Substance: MOMETASONE FUROATE
     Dosage: SPRAY, METERED DOSE
     Route: 065
  39. MOMETASONE FUROATE [Suspect]
     Active Substance: MOMETASONE FUROATE
     Route: 065
  40. MOMETASONE FUROATE [Suspect]
     Active Substance: MOMETASONE FUROATE
     Route: 048
  41. MONTELUKAST [Suspect]
     Active Substance: MONTELUKAST SODIUM
     Indication: Product used for unknown indication
     Route: 065
  42. MONTELUKAST [Suspect]
     Active Substance: MONTELUKAST SODIUM
     Route: 048
  43. MONTELUKAST [Suspect]
     Active Substance: MONTELUKAST SODIUM
     Route: 065
  44. MONTELUKAST [Suspect]
     Active Substance: MONTELUKAST SODIUM
     Route: 048
  45. MONTELUKAST [Suspect]
     Active Substance: MONTELUKAST SODIUM
     Dosage: MONTELUKAST SODIUM
     Route: 065
  46. MONTELUKAST [Suspect]
     Active Substance: MONTELUKAST SODIUM
     Dosage: MONTELUKAST SODIUM
     Route: 048
  47. MONTELUKAST [Suspect]
     Active Substance: MONTELUKAST SODIUM
     Dosage: MONTELUKAST SODIUM
     Route: 048
  48. MONTELUKAST [Suspect]
     Active Substance: MONTELUKAST SODIUM
     Dosage: MONTELUKAST SODIUM
     Route: 065
  49. PREDNISONE [Suspect]
     Active Substance: PREDNISONE
     Indication: Product used for unknown indication
     Route: 065
  50. PREDNISONE [Suspect]
     Active Substance: PREDNISONE
     Route: 055
  51. PREDNISONE [Suspect]
     Active Substance: PREDNISONE
     Route: 065
  52. PREDNISONE [Suspect]
     Active Substance: PREDNISONE
     Route: 065
  53. PULMICORT TURBUHALER [Suspect]
     Active Substance: BUDESONIDE
     Indication: Product used for unknown indication
     Route: 065
  54. PULMICORT TURBUHALER [Suspect]
     Active Substance: BUDESONIDE
     Route: 055
  55. PULMICORT TURBUHALER [Suspect]
     Active Substance: BUDESONIDE
     Route: 050
  56. PULMICORT TURBUHALER [Suspect]
     Active Substance: BUDESONIDE
     Route: 055
  57. ROSUVASTATIN [Suspect]
     Active Substance: ROSUVASTATIN
     Indication: Product used for unknown indication
     Route: 065
  58. ROSUVASTATIN [Suspect]
     Active Substance: ROSUVASTATIN
     Route: 065
  59. ROSUVASTATIN [Suspect]
     Active Substance: ROSUVASTATIN
     Dosage: ROSUVASTATIN CALCIUM
     Route: 048
  60. ROSUVASTATIN [Suspect]
     Active Substance: ROSUVASTATIN
     Dosage: ROSUVASTATIN CALCIUM
     Route: 065
  61. ROSUVASTATIN [Suspect]
     Active Substance: ROSUVASTATIN
     Dosage: ROSUVASTATIN CALCIUM
     Route: 065
  62. ROSUVASTATIN [Suspect]
     Active Substance: ROSUVASTATIN
     Dosage: ROSUVASTATIN CALCIUM
     Route: 048
  63. ROSUVASTATIN [Suspect]
     Active Substance: ROSUVASTATIN
     Dosage: ROSUVASTATIN CALCIUM
     Route: 048
  64. SINGULAIR [Suspect]
     Active Substance: MONTELUKAST SODIUM
     Indication: Product used for unknown indication
     Route: 065
  65. SINGULAIR [Suspect]
     Active Substance: MONTELUKAST SODIUM
     Route: 048
  66. SINGULAIR [Suspect]
     Active Substance: MONTELUKAST SODIUM
     Route: 048
  67. SINGULAIR [Suspect]
     Active Substance: MONTELUKAST SODIUM
     Route: 065
  68. SYNTHROID [Suspect]
     Active Substance: LEVOTHYROXINE SODIUM
     Indication: Product used for unknown indication
     Route: 065
  69. XOLAIR [Suspect]
     Active Substance: OMALIZUMAB
     Indication: Product used for unknown indication
     Route: 065
  70. IRON [Suspect]
     Active Substance: IRON
     Indication: Product used for unknown indication
     Route: 065
  71. LEVOTHYROXINE SODIUM [Suspect]
     Active Substance: LEVOTHYROXINE SODIUM
     Indication: Product used for unknown indication
     Route: 005
  72. LEVOTHYROXINE SODIUM [Suspect]
     Active Substance: LEVOTHYROXINE SODIUM
     Route: 065
  73. LEVOTHYROXINE SODIUM [Suspect]
     Active Substance: LEVOTHYROXINE SODIUM
     Route: 048
  74. FERROUS SULFATE ANHYDROUS [Suspect]
     Active Substance: FERROUS SULFATE ANHYDROUS
     Indication: Product used for unknown indication
     Dosage: NOT SPECIFIED
     Route: 065
  75. OMALIZUMAB [Suspect]
     Active Substance: OMALIZUMAB
     Indication: Product used for unknown indication
     Dosage: NOT SPECIFIED
     Route: 065
  76. BUDESONIDE\FORMOTEROL FUMARATE [Suspect]
     Active Substance: BUDESONIDE\FORMOTEROL FUMARATE
     Indication: Product used for unknown indication
     Route: 055
  77. BUDESONIDE\FORMOTEROL FUMARATE [Suspect]
     Active Substance: BUDESONIDE\FORMOTEROL FUMARATE
     Route: 065
  78. BUDESONIDE\FORMOTEROL FUMARATE [Suspect]
     Active Substance: BUDESONIDE\FORMOTEROL FUMARATE
     Route: 050
  79. JANUMET [Suspect]
     Active Substance: METFORMIN HYDROCHLORIDE\SITAGLIPTIN PHOSPHATE
     Indication: Product used for unknown indication
     Dosage: NOT SPECIFIED.
     Route: 065
  80. ROPINIROLE HYDROCHLORIDE [Suspect]
     Active Substance: ROPINIROLE HYDROCHLORIDE
     Indication: Product used for unknown indication
     Route: 065
  81. ROPINIROLE HYDROCHLORIDE [Suspect]
     Active Substance: ROPINIROLE HYDROCHLORIDE
     Route: 065
  82. ROPINIROLE HYDROCHLORIDE [Suspect]
     Active Substance: ROPINIROLE HYDROCHLORIDE
     Route: 065
  83. ROPINIROLE HYDROCHLORIDE [Suspect]
     Active Substance: ROPINIROLE HYDROCHLORIDE
     Route: 048
  84. ROPINIROLE HYDROCHLORIDE [Suspect]
     Active Substance: ROPINIROLE HYDROCHLORIDE
     Route: 065
  85. ROPINIROLE HYDROCHLORIDE [Suspect]
     Active Substance: ROPINIROLE HYDROCHLORIDE
     Route: 065
  86. SYMBICORT [Suspect]
     Active Substance: BUDESONIDE\FORMOTEROL FUMARATE DIHYDRATE
     Indication: Product used for unknown indication
     Route: 055
  87. BUDESONIDE [Suspect]
     Active Substance: BUDESONIDE
     Indication: Product used for unknown indication
     Route: 055
  88. MOMETASONE [Suspect]
     Active Substance: MOMETASONE
     Indication: Product used for unknown indication
     Dosage: SPRAY, METERED DOSE
     Route: 065
  89. MOMETASONE [Suspect]
     Active Substance: MOMETASONE
     Route: 065
  90. RISEDRONATE SODIUM [Suspect]
     Active Substance: RISEDRONATE SODIUM
     Indication: Product used for unknown indication
     Route: 065
  91. RISEDRONATE SODIUM [Suspect]
     Active Substance: RISEDRONATE SODIUM
     Route: 065
  92. RISEDRONATE SODIUM [Suspect]
     Active Substance: RISEDRONATE SODIUM
     Dosage: RISEDRONATE SODIUM
     Route: 048
  93. RISEDRONATE SODIUM [Suspect]
     Active Substance: RISEDRONATE SODIUM
     Dosage: RISEDRONATE SODIUM
     Route: 065
  94. RISEDRONATE SODIUM [Suspect]
     Active Substance: RISEDRONATE SODIUM
     Dosage: RISEDRONATE SODIUM
     Route: 065
  95. RISEDRONATE SODIUM [Suspect]
     Active Substance: RISEDRONATE SODIUM
     Dosage: RISEDRONATE SODIUM
     Route: 048
  96. RISEDRONATE SODIUM [Suspect]
     Active Substance: RISEDRONATE SODIUM
     Dosage: RISEDRONATE SODIUM
     Route: 048
  97. RISEDRONATE SODIUM [Suspect]
     Active Substance: RISEDRONATE SODIUM
     Dosage: RISEDRONATE SODIUM- NOT SPECIFIED
     Route: 048
  98. RISEDRONATE SODIUM [Suspect]
     Active Substance: RISEDRONATE SODIUM
     Dosage: RISEDRONATE SODIUM
     Route: 065
  99. ACTONEL [Suspect]
     Active Substance: RISEDRONATE SODIUM
     Indication: Product used for unknown indication
     Route: 065
  100. ACTONEL [Suspect]
     Active Substance: RISEDRONATE SODIUM
     Route: 048
  101. SITAGLIPTIN [Suspect]
     Active Substance: SITAGLIPTIN
     Indication: Product used for unknown indication
     Route: 048
  102. SITAGLIPTIN [Suspect]
     Active Substance: SITAGLIPTIN
     Route: 065
  103. SITAGLIPTIN [Suspect]
     Active Substance: SITAGLIPTIN
     Route: 065
  104. SITAGLIPTIN [Suspect]
     Active Substance: SITAGLIPTIN
     Route: 048
  105. SITAGLIPTIN [Suspect]
     Active Substance: SITAGLIPTIN
     Dosage: SITAGLIPTIN PHOSPHATE MONOHYDRATE
     Route: 048
  106. SITAGLIPTIN [Suspect]
     Active Substance: SITAGLIPTIN
     Dosage: SITAGLIPTIN PHOSPHATE MONOHYDRATE
     Route: 065
  107. SITAGLIPTIN [Suspect]
     Active Substance: SITAGLIPTIN
     Dosage: SITAGLIPTIN PHOSPHATE
     Route: 048
  108. SITAGLIPTIN [Suspect]
     Active Substance: SITAGLIPTIN
     Dosage: SITAGLIPTIN PHOSPHATE
     Route: 048
  109. METFORMIN HYDROCHLORIDE [Suspect]
     Active Substance: METFORMIN HYDROCHLORIDE
     Indication: Product used for unknown indication
     Route: 065
  110. CANAGLIFLOZIN [Suspect]
     Active Substance: CANAGLIFLOZIN
     Indication: Type 2 diabetes mellitus
     Route: 048
  111. CANAGLIFLOZIN [Suspect]
     Active Substance: CANAGLIFLOZIN
     Route: 065
  112. CANAGLIFLOZIN [Suspect]
     Active Substance: CANAGLIFLOZIN
     Route: 048
  113. CANAGLIFLOZIN [Suspect]
     Active Substance: CANAGLIFLOZIN
     Route: 065
  114. ALBUTEROL [Suspect]
     Active Substance: ALBUTEROL
     Indication: Product used for unknown indication
     Route: 065
  115. FORMOTEROL [Suspect]
     Active Substance: FORMOTEROL
     Indication: Product used for unknown indication
     Route: 005
  116. FORMOTEROL [Suspect]
     Active Substance: FORMOTEROL
     Route: 055
  117. FORMOTEROL [Suspect]
     Active Substance: FORMOTEROL
     Dosage: FORMOTEROL FUMARATE
     Route: 005
  118. FORMOTEROL [Suspect]
     Active Substance: FORMOTEROL
     Dosage: FORMOTEROL FUMARATE
     Route: 055
  119. FORMOTEROL [Suspect]
     Active Substance: FORMOTEROL
     Dosage: FORMOTEROL FUMARATE
     Route: 065
  120. RISEDRONIC ACID [Suspect]
     Active Substance: RISEDRONIC ACID
     Indication: Product used for unknown indication
     Route: 065
  121. RISEDRONIC ACID [Suspect]
     Active Substance: RISEDRONIC ACID
     Route: 048
  122. SYNTHROID [Suspect]
     Active Substance: LEVOTHYROXINE SODIUM
     Indication: Product used for unknown indication
     Route: 065
  123. PREVACID [Suspect]
     Active Substance: LANSOPRAZOLE
     Indication: Product used for unknown indication
     Dosage: PREVACID FASTAB
     Route: 048
  124. PREVACID [Suspect]
     Active Substance: LANSOPRAZOLE
     Route: 065
  125. PREVACID [Suspect]
     Active Substance: LANSOPRAZOLE
     Route: 065
  126. PREVACID [Suspect]
     Active Substance: LANSOPRAZOLE
     Route: 048
  127. PREVACID [Suspect]
     Active Substance: LANSOPRAZOLE
     Route: 048
  128. PREVACID [Suspect]
     Active Substance: LANSOPRAZOLE
     Route: 065
  129. IRON DEXTRAN [Suspect]
     Active Substance: IRON DEXTRAN
     Indication: Product used for unknown indication
     Route: 065
  130. CANAGLIFLOZIN\METFORMIN HYDROCHLORIDE [Suspect]
     Active Substance: CANAGLIFLOZIN\METFORMIN HYDROCHLORIDE
     Indication: Product used for unknown indication
     Route: 048
  131. JANUVIA [Suspect]
     Active Substance: SITAGLIPTIN PHOSPHATE
     Indication: Product used for unknown indication
     Route: 065
  132. JANUVIA [Suspect]
     Active Substance: SITAGLIPTIN PHOSPHATE
     Route: 048
  133. NASONEX [Suspect]
     Active Substance: MOMETASONE FUROATE
     Indication: Product used for unknown indication
     Dosage: NASAL SPRAY, SUSPENSION
     Route: 065
  134. NASONEX [Suspect]
     Active Substance: MOMETASONE FUROATE
     Dosage: SPRAY, METERED DOSE
     Route: 065
  135. METFORMIN\SITAGLIPTIN [Suspect]
     Active Substance: METFORMIN\SITAGLIPTIN
     Indication: Product used for unknown indication
     Route: 065
  136. METFORMIN\SITAGLIPTIN [Suspect]
     Active Substance: METFORMIN\SITAGLIPTIN
     Dosage: METFORMIN HYDROCHLORIDE;SITAGLIPTIN PHOSPHATE
     Route: 048
  137. METFORMIN\SITAGLIPTIN [Suspect]
     Active Substance: METFORMIN\SITAGLIPTIN
     Dosage: METFORMIN HYDROCHLORIDE;SITAGLIPTIN PHOSPHATE
     Route: 065
  138. METFORMIN\SITAGLIPTIN [Suspect]
     Active Substance: METFORMIN\SITAGLIPTIN
     Dosage: METFORMIN HYDROCHLORIDE;SITAGLIPTIN PHOSPHATE
     Route: 048
  139. METFORMIN\SITAGLIPTIN [Suspect]
     Active Substance: METFORMIN\SITAGLIPTIN
     Dosage: METFORMIN HYDROCHLORIDE;SITAGLIPTIN PHOSPHATE
     Route: 065
  140. METFORMIN\SITAGLIPTIN [Suspect]
     Active Substance: METFORMIN\SITAGLIPTIN
     Dosage: METFORMIN HYDROCHLORIDE;SITAGLIPTIN PHOSPHATE MONOHYDRATE
     Route: 065
  141. METFORMIN\SITAGLIPTIN [Suspect]
     Active Substance: METFORMIN\SITAGLIPTIN
     Dosage: METFORMIN HYDROCHLORIDE;SITAGLIPTIN PHOSPHATE MONOHYDRATE
     Route: 065
  142. ALBUTEROL [Suspect]
     Active Substance: ALBUTEROL
     Indication: Asthma
     Route: 065

REACTIONS (5)
  - Full blood count abnormal [Unknown]
  - Gastrooesophageal reflux disease [Unknown]
  - Asthma [Unknown]
  - Type 2 diabetes mellitus [Unknown]
  - Hyperglycaemia [Unknown]
